FAERS Safety Report 7338044-2 (Version None)
Quarter: 2011Q1

REPORT INFORMATION
  Report Type: 
  Country: None (occurrence: None)
  Receive Date: 20110308
  Receipt Date: 20110222
  Transmission Date: 20110831
  Serious: Yes (Hospitalization)
  Sender: FDA-Public Use
  Company Number: PHHY2011CA15863

PATIENT
  Sex: Female

DRUGS (6)
  1. ACLASTA [Suspect]
     Indication: OSTEOPOROSIS
     Dosage: 5 MG,
     Dates: start: 20100120
  2. ACLASTA [Suspect]
     Dosage: 5 MG,
     Dates: start: 20110119
  3. SYNTHROID [Concomitant]
  4. NEXIUM [Concomitant]
  5. CALCIUM [Concomitant]
  6. VITAMIN D [Concomitant]

REACTIONS (4)
  - SEPSIS [None]
  - PYREXIA [None]
  - PULMONARY CONGESTION [None]
  - PNEUMONIA [None]
